FAERS Safety Report 7179452-2 (Version None)
Quarter: 2010Q4

REPORT INFORMATION
  Report Type: 
  Country: None (occurrence: None)
  Receive Date: 20101221
  Receipt Date: 20101210
  Transmission Date: 20110411
  Serious: Yes (Other)
  Sender: FDA-Public Use
  Company Number: US-GENZYME-THYM-1002175

PATIENT
  Age: 35 Year
  Sex: Female
  Weight: 80 kg

DRUGS (7)
  1. THYMOGLOBULIN [Suspect]
     Indication: PROPHYLAXIS AGAINST TRANSPLANT REJECTION
     Dosage: 1 MG/KG, UNK
     Route: 042
  2. BASILIXIMAB [Concomitant]
     Indication: PROPHYLAXIS AGAINST TRANSPLANT REJECTION
     Dosage: 20 MG, UNK
  3. TACROLIMUS [Concomitant]
     Indication: IMMUNOSUPPRESSION
  4. SIROLIMUS [Concomitant]
     Indication: IMMUNOSUPPRESSION
  5. CORTICOSTEROIDS [Concomitant]
     Indication: IMMUNOSUPPRESSION
  6. INSULIN [Concomitant]
     Indication: DIABETES MELLITUS
  7. DEXTRAN 40 [Concomitant]
     Indication: THROMBOSIS PROPHYLAXIS

REACTIONS (3)
  - ATRIAL THROMBOSIS [None]
  - COMPLICATIONS OF TRANSPLANTED PANCREAS [None]
  - URINARY ANASTOMOTIC LEAK [None]
